FAERS Safety Report 14229517 (Version 1)
Quarter: 2017Q4

REPORT INFORMATION
  Report Type: Spontaneous
  Country: CO (occurrence: CO)
  Receive Date: 20171128
  Receipt Date: 20171128
  Transmission Date: 20180321
  Serious: Yes (Other)
  Sender: FDA-Public Use
  Company Number: CO-ROCHE-2030427

PATIENT
  Sex: Female

DRUGS (1)
  1. OMALIZUMAB. [Suspect]
     Active Substance: OMALIZUMAB
     Indication: PRODUCT USED FOR UNKNOWN INDICATION
     Route: 065
     Dates: start: 20171101

REACTIONS (8)
  - Hypersensitivity [Unknown]
  - Depressed mood [Unknown]
  - Headache [Unknown]
  - Rebound effect [Unknown]
  - Dyspnoea [Unknown]
  - Feeling abnormal [Unknown]
  - Gastritis [Unknown]
  - Nausea [Unknown]
